FAERS Safety Report 9844704 (Version 3)
Quarter: 2017Q2

REPORT INFORMATION
  Report Type: Spontaneous
  Country: DE (occurrence: DE)
  Receive Date: 20140127
  Receipt Date: 20170524
  Transmission Date: 20170830
  Serious: Yes (Hospitalization, Other)
  Sender: FDA-Public Use
  Company Number: DE-JNJFOC-20140112901

PATIENT
  Age: 81 Year
  Sex: Female
  Weight: 88 kg

DRUGS (67)
  1. INFLUVAC [Concomitant]
     Active Substance: INFLUENZA VIRUS VACCINE
     Indication: INFLUENZA IMMUNISATION
     Route: 030
     Dates: start: 20101005, end: 20101005
  2. INFLUENZA VIRUS VACCINE, SWINE NOS [Concomitant]
     Active Substance: INFLUENZA VIRUS VACCINE, SWINE
     Indication: INFLUENZA IMMUNISATION
     Route: 030
     Dates: start: 20091116, end: 20091116
  3. RUPATADINE [Concomitant]
     Active Substance: RUPATADINE
     Indication: DERMATITIS
     Route: 048
     Dates: start: 20120514
  4. ACETYLSALICYLIC ACID [Suspect]
     Active Substance: ASPIRIN
     Indication: CARDIOVASCULAR EVENT PROPHYLAXIS
     Route: 048
     Dates: start: 20080303, end: 20090310
  5. HYDROCORTISONE ACETATE. [Concomitant]
     Active Substance: HYDROCORTISONE ACETATE
     Indication: HAEMORRHOIDS
     Route: 054
     Dates: start: 20080922, end: 20081007
  6. PHENYLBUTAZONE [Concomitant]
     Active Substance: PHENYLBUTAZONE
     Indication: SPINAL OSTEOARTHRITIS
     Route: 030
     Dates: start: 20090706, end: 20090706
  7. TRIAMHEXAL [Concomitant]
     Active Substance: TRIAMCINOLONE
     Indication: RHINITIS ALLERGIC
     Route: 030
     Dates: start: 20100412, end: 20100412
  8. TRIAM [Concomitant]
     Active Substance: TRIAMCINOLONE
     Indication: RHINITIS ALLERGIC
     Route: 030
     Dates: start: 20110404, end: 20110404
  9. ALFASON CRELO [Concomitant]
     Indication: DERMATITIS
     Route: 061
     Dates: start: 20120524
  10. XARELTO [Suspect]
     Active Substance: RIVAROXABAN
     Indication: ATRIAL FIBRILLATION
     Route: 048
     Dates: start: 20121015, end: 201304
  11. ACETYLSALICYLIC ACID [Suspect]
     Active Substance: ASPIRIN
     Indication: CARDIOVASCULAR DISORDER
     Route: 048
     Dates: start: 20080303, end: 20090310
  12. ACETYLSALICYLIC ACID [Suspect]
     Active Substance: ASPIRIN
     Indication: CARDIOVASCULAR EVENT PROPHYLAXIS
     Route: 048
     Dates: start: 20120302, end: 20120316
  13. ACETYLSALICYLIC ACID [Suspect]
     Active Substance: ASPIRIN
     Indication: CARDIOVASCULAR EVENT PROPHYLAXIS
     Route: 048
     Dates: start: 20120322
  14. LIPOTALON [Concomitant]
     Active Substance: DEXAMETHASONE PALMITATE
     Indication: OSTEOARTHRITIS
     Route: 030
     Dates: start: 20100423, end: 20120423
  15. LIPOTALON [Concomitant]
     Active Substance: DEXAMETHASONE PALMITATE
     Indication: OSTEOARTHRITIS
     Route: 030
     Dates: start: 20090528, end: 20090528
  16. AERIUS [Concomitant]
     Active Substance: DESLORATADINE
     Indication: URTICARIA
     Route: 048
     Dates: start: 20090129, end: 20090131
  17. CIPROFLOXACIN SANDOZ [Concomitant]
     Active Substance: CIPROFLOXACIN
     Indication: URINARY TRACT INFECTION
     Route: 048
     Dates: start: 20090707, end: 20090707
  18. TRAMABETA [Concomitant]
     Indication: OSTEOARTHRITIS
     Route: 048
     Dates: start: 20101019
  19. PANTOZOL [Concomitant]
     Active Substance: PANTOPRAZOLE SODIUM
     Indication: UPPER GASTROINTESTINAL HAEMORRHAGE
     Route: 048
     Dates: start: 20130405
  20. ACETYLSALICYLIC ACID [Suspect]
     Active Substance: ASPIRIN
     Indication: CARDIOVASCULAR DISORDER
     Route: 048
     Dates: end: 20130304
  21. ACETYLSALICYLIC ACID [Suspect]
     Active Substance: ASPIRIN
     Indication: CARDIOVASCULAR EVENT PROPHYLAXIS
     Route: 048
     Dates: start: 20110303, end: 20120301
  22. LIPOTALON [Concomitant]
     Active Substance: DEXAMETHASONE PALMITATE
     Indication: OSTEOARTHRITIS
     Route: 030
     Dates: start: 20121001, end: 20121001
  23. CODICOMPREN [Concomitant]
     Indication: BRONCHITIS
     Route: 048
     Dates: start: 20091026, end: 20091105
  24. MOVICOL [Concomitant]
     Active Substance: POLYETHYLENE GLYCOL 3350\POTASSIUM CHLORIDE\SODIUM BICARBONATE\SODIUM CHLORIDE
     Indication: CONSTIPATION
     Route: 048
     Dates: start: 20120130, end: 20120203
  25. ACETYLSALICYLIC ACID [Suspect]
     Active Substance: ASPIRIN
     Indication: CARDIOVASCULAR DISORDER
     Route: 048
     Dates: start: 20120302, end: 20120316
  26. ACETYLSALICYLIC ACID [Suspect]
     Active Substance: ASPIRIN
     Indication: CARDIOVASCULAR DISORDER
     Route: 048
     Dates: start: 20100303, end: 20110302
  27. ACETYLSALICYLIC ACID [Suspect]
     Active Substance: ASPIRIN
     Indication: CARDIOVASCULAR EVENT PROPHYLAXIS
     Route: 048
     Dates: end: 20130304
  28. LIPOTALON [Concomitant]
     Active Substance: DEXAMETHASONE PALMITATE
     Indication: OSTEOARTHRITIS
     Route: 030
     Dates: start: 20120423, end: 20120423
  29. LIPOTALON [Concomitant]
     Active Substance: DEXAMETHASONE PALMITATE
     Indication: OSTEOARTHRITIS
     Route: 030
     Dates: start: 20110324, end: 20110324
  30. LIPOTALON [Concomitant]
     Active Substance: DEXAMETHASONE PALMITATE
     Indication: OSTEOARTHRITIS
     Route: 030
     Dates: start: 20091116, end: 20091116
  31. PHENYLBUTAZONE [Concomitant]
     Active Substance: PHENYLBUTAZONE
     Indication: SPINAL OSTEOARTHRITIS
     Route: 030
     Dates: start: 20110729, end: 20110802
  32. CIPROFLOXACIN SANDOZ [Concomitant]
     Active Substance: CIPROFLOXACIN
     Indication: URINARY TRACT INFECTION
     Route: 048
  33. POSTERISAN [Concomitant]
     Active Substance: LIDOCAINE
     Indication: HAEMORRHOIDS
     Route: 065
  34. AMOXICILLIN. [Concomitant]
     Active Substance: AMOXICILLIN
     Indication: GASTRITIS EROSIVE
     Route: 048
     Dates: start: 20130405
  35. ACETYLSALICYLIC ACID [Suspect]
     Active Substance: ASPIRIN
     Indication: CARDIOVASCULAR EVENT PROPHYLAXIS
     Route: 048
     Dates: end: 20130305
  36. ACETYLSALICYLIC ACID [Suspect]
     Active Substance: ASPIRIN
     Indication: CARDIOVASCULAR EVENT PROPHYLAXIS
     Route: 048
     Dates: start: 20100303, end: 20110302
  37. PHENYLBUTAZONE [Concomitant]
     Active Substance: PHENYLBUTAZONE
     Indication: BACK PAIN
     Route: 030
     Dates: start: 20110729, end: 20110802
  38. INFLUVAC [Concomitant]
     Active Substance: INFLUENZA VIRUS VACCINE
     Indication: INFLUENZA IMMUNISATION
     Route: 030
     Dates: start: 20111025, end: 20111025
  39. INFLUVAC [Concomitant]
     Active Substance: INFLUENZA VIRUS VACCINE
     Indication: INFLUENZA IMMUNISATION
     Route: 030
     Dates: start: 20091013, end: 20091013
  40. INFLUENZA VACCINE [Concomitant]
     Active Substance: INFLUENZA VIRUS VACCINE
     Indication: INFLUENZA IMMUNISATION
     Route: 030
     Dates: start: 20081027, end: 20081027
  41. KLACID /00984601/ [Concomitant]
     Active Substance: CLARITHROMYCIN
     Indication: GASTRITIS EROSIVE
     Route: 048
     Dates: start: 20130405
  42. REKAWAN [Concomitant]
     Active Substance: POTASSIUM CHLORIDE
     Indication: HYPOKALAEMIA
     Route: 048
     Dates: start: 20130406
  43. ACETYLSALICYLIC ACID [Suspect]
     Active Substance: ASPIRIN
     Indication: CARDIOVASCULAR DISORDER
     Route: 048
     Dates: start: 20120322
  44. ACETYLSALICYLIC ACID [Suspect]
     Active Substance: ASPIRIN
     Indication: CARDIOVASCULAR DISORDER
     Route: 048
     Dates: start: 20110303, end: 20120301
  45. ASPIRIN. [Suspect]
     Active Substance: ASPIRIN
     Indication: CARDIOVASCULAR EVENT PROPHYLAXIS
     Dosage: 100
     Route: 048
     Dates: start: 20130307
  46. METOPROLOL SUCCINATE. [Concomitant]
     Active Substance: METOPROLOL SUCCINATE
     Indication: HYPERTENSION
     Route: 048
     Dates: start: 20120316
  47. METOPROLOL SUCCINATE. [Concomitant]
     Active Substance: METOPROLOL SUCCINATE
     Indication: HYPERTENSION
     Route: 048
     Dates: start: 20060831, end: 20120315
  48. SIMVASTATIN. [Concomitant]
     Active Substance: SIMVASTATIN
     Indication: HYPERLIPIDAEMIA
     Route: 048
     Dates: start: 20030917
  49. LIPOTALON [Concomitant]
     Active Substance: DEXAMETHASONE PALMITATE
     Indication: OSTEOARTHRITIS
     Route: 030
     Dates: start: 20090108, end: 20090108
  50. PHENYLBUTAZONE [Concomitant]
     Active Substance: PHENYLBUTAZONE
     Indication: BACK PAIN
     Route: 030
     Dates: start: 20090706, end: 20090706
  51. TRIAM [Concomitant]
     Active Substance: TRIAMCINOLONE
     Indication: RHINITIS ALLERGIC
     Route: 030
     Dates: start: 20120405, end: 20120405
  52. ACETYLSALICYLIC ACID [Suspect]
     Active Substance: ASPIRIN
     Indication: CARDIOVASCULAR DISORDER
     Route: 048
     Dates: start: 20090311, end: 20100302
  53. ACETYLSALICYLIC ACID [Suspect]
     Active Substance: ASPIRIN
     Indication: CARDIOVASCULAR EVENT PROPHYLAXIS
     Route: 048
     Dates: start: 20090311, end: 20100302
  54. LIPOTALON [Concomitant]
     Active Substance: DEXAMETHASONE PALMITATE
     Indication: OSTEOARTHRITIS
     Route: 030
     Dates: start: 20120419, end: 20120419
  55. LIPOTALON [Concomitant]
     Active Substance: DEXAMETHASONE PALMITATE
     Indication: OSTEOARTHRITIS
     Route: 030
     Dates: start: 20101014, end: 20101014
  56. LIPOTALON [Concomitant]
     Active Substance: DEXAMETHASONE PALMITATE
     Indication: OSTEOARTHRITIS
     Route: 030
  57. LIPOTALON [Concomitant]
     Active Substance: DEXAMETHASONE PALMITATE
     Indication: OSTEOARTHRITIS
     Route: 030
     Dates: start: 20120924, end: 20120924
  58. INFLUVAC [Concomitant]
     Active Substance: INFLUENZA VIRUS VACCINE
     Indication: INFLUENZA IMMUNISATION
     Route: 030
     Dates: start: 20121009, end: 20121009
  59. CIPROFLOXACIN. [Concomitant]
     Active Substance: CIPROFLOXACIN
     Indication: URINARY TRACT INFECTION
     Route: 048
     Dates: start: 20120213, end: 20120217
  60. DERMATOP [Concomitant]
     Active Substance: PREDNICARBATE
     Indication: DERMATITIS
     Route: 061
     Dates: start: 20120514, end: 20120523
  61. CLARITHROMYCIN. [Concomitant]
     Active Substance: CLARITHROMYCIN
     Indication: PNEUMONIA
     Route: 048
     Dates: start: 20120316, end: 20120321
  62. XARELTO [Suspect]
     Active Substance: RIVAROXABAN
     Indication: ATRIAL FIBRILLATION
     Route: 048
     Dates: start: 201304
  63. ACETYLSALICYLIC ACID [Suspect]
     Active Substance: ASPIRIN
     Indication: CARDIOVASCULAR DISORDER
     Route: 048
     Dates: end: 20130305
  64. LIPOTALON [Concomitant]
     Active Substance: DEXAMETHASONE PALMITATE
     Indication: OSTEOARTHRITIS
     Route: 030
     Dates: start: 20130221, end: 20130221
  65. LIPOTALON [Concomitant]
     Active Substance: DEXAMETHASONE PALMITATE
     Indication: OSTEOARTHRITIS
     Route: 030
     Dates: start: 20130219, end: 20130221
  66. LIPOTALON [Concomitant]
     Active Substance: DEXAMETHASONE PALMITATE
     Indication: OSTEOARTHRITIS
     Route: 030
     Dates: start: 20100322, end: 20100322
  67. LIPOTALON [Concomitant]
     Active Substance: DEXAMETHASONE PALMITATE
     Indication: OSTEOARTHRITIS
     Route: 030
     Dates: start: 20090602, end: 20090602

REACTIONS (5)
  - Hypertensive crisis [Recovered/Resolved]
  - Cardiac failure [Recovered/Resolved]
  - Pneumonia [Recovered/Resolved]
  - Atrial fibrillation [Recovered/Resolved]
  - Upper gastrointestinal haemorrhage [Recovered/Resolved]

NARRATIVE: CASE EVENT DATE: 20120316
